FAERS Safety Report 6706378-8 (Version None)
Quarter: 2010Q2

REPORT INFORMATION
  Report Type: 
  Country: None (occurrence: None)
  Receive Date: 20100503
  Receipt Date: 20100420
  Transmission Date: 20101027
  Serious: Yes (Hospitalization)
  Sender: FDA-Public Use
  Company Number: PHHY2010FR22104

PATIENT
  Age: 40 Year
  Sex: Male

DRUGS (2)
  1. RASILEZ [Suspect]
     Dosage: UNK
  2. ANGIOTENSIN II ANTAGONISTS [Concomitant]
     Dosage: UNK

REACTIONS (3)
  - DIARRHOEA [None]
  - RENAL FAILURE ACUTE [None]
  - VOMITING [None]
